FAERS Safety Report 5684402-1 (Version None)
Quarter: 2008Q1

REPORT INFORMATION
  Report Type: 
  Country: None (occurrence: None)
  Receive Date: 20080327
  Receipt Date: 20080327
  Transmission Date: 20080703
  Serious: Yes (Hospitalization)
  Sender: FDA-Public Use
  Company Number: None

PATIENT
  Age: 74 Year
  Sex: Female
  Weight: 58.2 kg

DRUGS (2)
  1. ISONIAZID [Suspect]
     Indication: TUBERCULIN TEST POSITIVE
     Dosage: 300MG ONE PO DAILY
     Route: 048
     Dates: start: 20080226
  2. ISONIAZID [Suspect]
     Indication: TUBERCULOSIS
     Dosage: 300MG ONE PO DAILY
     Route: 048
     Dates: start: 20080226

REACTIONS (1)
  - PLEURAL EFFUSION [None]
